FAERS Safety Report 7255225-7 (Version None)
Quarter: 2011Q1

REPORT INFORMATION
  Report Type: 
  Country: None (occurrence: None)
  Receive Date: 20110129
  Receipt Date: 20100219
  Transmission Date: 20110831
  Serious: No
  Sender: FDA-Public Use
  Company Number: US-ABBOTT-10P-163-0628567-00

PATIENT
  Sex: Female
  Weight: 77.18 kg

DRUGS (5)
  1. PREDNISONE [Concomitant]
     Indication: ARTHRALGIA
  2. HUMIRA [Suspect]
     Indication: RHEUMATOID ARTHRITIS
     Dates: start: 20070101
  3. METHOTREXATE [Concomitant]
     Indication: RHEUMATOID ARTHRITIS
  4. TRAZODONE HYDROCHLORIDE [Concomitant]
     Indication: INSOMNIA
  5. CELEXA [Concomitant]
     Indication: PRODUCT USED FOR UNKNOWN INDICATION
     Dosage: 1.5 PER DAY

REACTIONS (6)
  - MUSCULOSKELETAL STIFFNESS [None]
  - INJECTION SITE PAIN [None]
  - ABASIA [None]
  - ARTHRALGIA [None]
  - JOINT SWELLING [None]
  - POOR QUALITY DRUG ADMINISTERED [None]
